FAERS Safety Report 10449117 (Version 1)
Quarter: 2014Q3

REPORT INFORMATION
  Report Type: Spontaneous
  Country: US (occurrence: None)
  Receive Date: 20140911
  Receipt Date: 20140911
  Transmission Date: 20150326
  Serious: Yes (Other)
  Sender: FDA-Public Use
  Company Number: None

PATIENT
  Age: 68 Year
  Sex: Female
  Weight: 55.34 kg

DRUGS (6)
  1. VITAMIN B12 [Concomitant]
     Active Substance: CYANOCOBALAMIN
  2. TRU OSTED CALCIUM [Concomitant]
  3. AMOXICLLIN/K CLAVULAN [Suspect]
     Active Substance: AMOXICILLIN\CLAVULANATE POTASSIUM
     Indication: INFECTION PROPHYLAXIS
     Route: 048
     Dates: start: 20140819, end: 20140826
  4. SAME- [Concomitant]
  5. AMOXICLLIN/K CLAVULAN [Suspect]
     Active Substance: AMOXICILLIN\CLAVULANATE POTASSIUM
     Indication: TOOTH EXTRACTION
     Route: 048
     Dates: start: 20140819, end: 20140826
  6. AMBROTOSE BY MANNATECH [Concomitant]

REACTIONS (1)
  - Eye pain [None]

NARRATIVE: CASE EVENT DATE: 20140822
